FAERS Safety Report 8305429-7 (Version None)
Quarter: 2012Q2

REPORT INFORMATION
  Report Type: 
  Country: None (occurrence: None)
  Receive Date: 20120423
  Receipt Date: 20120417
  Transmission Date: 20120825
  Serious: Yes (Hospitalization)
  Sender: FDA-Public Use
  Company Number: PHHY2012US032485

PATIENT
  Age: 39 Year
  Sex: Female

DRUGS (13)
  1. LEVOTHYROXINE SODIUM [Concomitant]
  2. CITALOPRAM HYDROBROMIDE [Suspect]
  3. BUSPIRONE HCL [Suspect]
  4. METFORMIN HCL [Concomitant]
  5. PROCHLORPERAZINE [Suspect]
  6. METHADONE HCL [Suspect]
     Indication: PELVIC PAIN
  7. GABAPENTIN [Concomitant]
  8. AMITRIPTYLINE HCL [Suspect]
  9. ZONISAMIDE [Concomitant]
  10. QUETIAPINE [Suspect]
  11. MECLIZINE [Suspect]
  12. PROMETHAZINE [Suspect]
  13. PRAVASTATIN [Concomitant]

REACTIONS (12)
  - MENTAL STATUS CHANGES [None]
  - TREMOR [None]
  - HYPERHIDROSIS [None]
  - SEROTONIN SYNDROME [None]
  - ANXIETY [None]
  - SPEECH DISORDER [None]
  - DYSURIA [None]
  - MYDRIASIS [None]
  - SOMNOLENCE [None]
  - DEPRESSED LEVEL OF CONSCIOUSNESS [None]
  - CLONUS [None]
  - MUSCLE RIGIDITY [None]
